FAERS Safety Report 4277034-3 (Version None)
Quarter: 2004Q1

REPORT INFORMATION
  Report Type: 
  Country: None (occurrence: None)
  Receive Date: 20040120
  Receipt Date: 20040114
  Transmission Date: 20041129
  Serious: Yes (Other)
  Sender: FDA-Public Use
  Company Number: ERP04000006

PATIENT
  Age: 55 Year
  Sex: Female

DRUGS (1)
  1. ACTONEL [Suspect]
     Indication: OSTEOPOROSIS
     Dosage: 5MG, DAILY; ORAL
     Route: 048
     Dates: start: 20020101, end: 20031111

REACTIONS (1)
  - DEEP VEIN THROMBOSIS [None]
